FAERS Safety Report 7301837-1 (Version None)
Quarter: 2011Q1

REPORT INFORMATION
  Report Type: 
  Country: None (occurrence: None)
  Receive Date: 20110218
  Receipt Date: 20110209
  Transmission Date: 20110831
  Serious: Yes (Hospitalization)
  Sender: FDA-Public Use
  Company Number: US-ROCHE-730682

PATIENT
  Sex: Female
  Weight: 81 kg

DRUGS (8)
  1. OXALIPLATIN [Suspect]
     Route: 065
  2. BEVACIZUMAB [Suspect]
     Dosage: FIRST DOSE
     Route: 042
     Dates: start: 20090902
  3. RAD001 [Suspect]
     Dosage: LAST DOSE: 28 SEP 2010, INTERRUPTED, CURRENT CYCLE:15, DOSE INTERRUPTION
     Route: 048
     Dates: start: 20100921
  4. CAPECITABINE [Suspect]
     Dosage: 1500 MG EVERY AM AND 2000 MG EVERY PM
     Route: 048
     Dates: start: 20090902
  5. DILAUDID [Concomitant]
  6. BEVACIZUMAB [Suspect]
     Dosage: CURRENT CYCLE 15, LAST DOSE PRIOR TO SAE: 21 SEP 2010, PERMANENTLY DISCONTINUED
     Route: 042
     Dates: start: 20100921, end: 20100921
  7. CAPECITABINE [Suspect]
     Dosage: CURRENT CYCLE 15, 1500 MG, EVER AM AND 2000 MG EVERY PM, INTERRUPTED
     Route: 048
     Dates: start: 20100921, end: 20100928
  8. RAD001 [Suspect]
     Dosage: CURRENT CYCLE 15
     Route: 048
     Dates: start: 20090902

REACTIONS (1)
  - AORTIC DISSECTION [None]
